FAERS Safety Report 5810511-X (Version None)
Quarter: 2008Q3

REPORT INFORMATION
  Report Type: 
  Country: None (occurrence: None)
  Receive Date: 20080715
  Receipt Date: 20080707
  Transmission Date: 20090109
  Serious: Yes (Hospitalization)
  Sender: FDA-Public Use
  Company Number: US-ELI_LILLY_AND_COMPANY-US200807001372

PATIENT
  Sex: Female

DRUGS (1)
  1. HUMULIN 70/30 [Suspect]

REACTIONS (5)
  - ARTHRITIS [None]
  - BLOOD GLUCOSE INCREASED [None]
  - DRUG INEFFECTIVE [None]
  - PNEUMONIA [None]
  - TREMOR [None]
